FAERS Safety Report 4644340-X (Version None)
Quarter: 2005Q2

REPORT INFORMATION
  Report Type: 
  Country: None (occurrence: None)
  Receive Date: 20050331
  Receipt Date: 20050207
  Transmission Date: 20051028
  Serious: No
  Sender: FDA-Public Use
  Company Number: 04P-163-0284554-00

PATIENT
  Age: 75 Year
  Sex: Female
  Weight: 58.0604 kg

DRUGS (9)
  1. HUMIRA [Suspect]
     Indication: RHEUMATOID ARTHRITIS
     Dosage: 40 MG, 1 IN 2 WK, SUBCUTANEOUS
     Route: 058
     Dates: start: 20030303
  2. CHOLINE SALICYLATE [Suspect]
     Dosage: 3 IN 1 D
  3. DILTIAZEM HYDROCHLORIDE [Concomitant]
  4. OMEPRAZOLE [Concomitant]
  5. RISEDRONATE SODIUM [Concomitant]
  6. CYANOCOBALAMIN [Concomitant]
  7. ERGOCALCIFEROL [Concomitant]
  8. ASPIRIN [Concomitant]
  9. DYAZIDE [Concomitant]

REACTIONS (3)
  - DIARRHOEA [None]
  - EPISTAXIS [None]
  - HAEMATOCHEZIA [None]
